FAERS Safety Report 23114338 (Version 2)
Quarter: 2023Q4

REPORT INFORMATION
  Report Type: Report from Study
  Country: MY (occurrence: None)
  Receive Date: 20231027
  Receipt Date: 20231127
  Transmission Date: 20240110
  Serious: Yes (Death)
  Sender: FDA-Public Use
  Company Number: 2023A244268

PATIENT
  Age: 22171 Day
  Sex: Female

DRUGS (1)
  1. IMFINZI [Suspect]
     Active Substance: DURVALUMAB
     Indication: Non-small cell lung cancer
     Dosage: 120.0MG UNKNOWN
     Dates: start: 20230531, end: 20230705

REACTIONS (1)
  - Death [Fatal]

NARRATIVE: CASE EVENT DATE: 20230705
